FAERS Safety Report 12926721 (Version 1)
Quarter: 2016Q4

REPORT INFORMATION
  Report Type: Spontaneous
  Country: CN (occurrence: CN)
  Receive Date: 20161108
  Receipt Date: 20161108
  Transmission Date: 20170207
  Serious: Yes (Hospitalization, Other)
  Sender: FDA-Public Use
  Company Number: CN-ASTRAZENECA-2016SF17112

PATIENT
  Age: 21274 Day
  Sex: Male
  Weight: 80 kg

DRUGS (3)
  1. ROSUVASTATIN CALCIUM. [Suspect]
     Active Substance: ROSUVASTATIN CALCIUM
     Indication: ARTERIAL OCCLUSIVE DISEASE
     Route: 048
     Dates: start: 20160505, end: 20160521
  2. ASPIRIN. [Concomitant]
     Active Substance: ASPIRIN
     Indication: CORONARY ARTERY DISEASE
     Route: 048
     Dates: start: 20160505, end: 20160523
  3. ROSUVASTATIN CALCIUM. [Suspect]
     Active Substance: ROSUVASTATIN CALCIUM
     Indication: CORONARY ARTERY DISEASE
     Route: 048
     Dates: start: 20160505, end: 20160521

REACTIONS (5)
  - Chest discomfort [Unknown]
  - Alanine aminotransferase increased [Unknown]
  - Aspartate aminotransferase increased [Unknown]
  - Palpitations [Unknown]
  - Liver injury [Unknown]

NARRATIVE: CASE EVENT DATE: 20160520
